FAERS Safety Report 6696138-9 (Version None)
Quarter: 2010Q2

REPORT INFORMATION
  Report Type: 
  Country: None (occurrence: None)
  Receive Date: 20100426
  Receipt Date: 20100416
  Transmission Date: 20101027
  Serious: Yes (Hospitalization, Other)
  Sender: FDA-Public Use
  Company Number: US-AMGEN-QUU406620

PATIENT
  Sex: Female

DRUGS (1)
  1. ENBREL [Suspect]
     Indication: RHEUMATOID ARTHRITIS
     Route: 058
     Dates: start: 20010101

REACTIONS (6)
  - ANXIETY [None]
  - CHOLELITHIASIS [None]
  - DEPRESSION [None]
  - IMPAIRED GASTRIC EMPTYING [None]
  - INJECTION SITE PAIN [None]
  - INSOMNIA [None]
